FAERS Safety Report 22196959 (Version 2)
Quarter: 2023Q2

REPORT INFORMATION
  Report Type: Spontaneous
  Country: CA (occurrence: CA)
  Receive Date: 20230411
  Receipt Date: 20230519
  Transmission Date: 20230721
  Serious: No
  Sender: FDA-Public Use
  Company Number: CA-PFIZER INC-PV202300058063

PATIENT
  Age: 43 Year
  Sex: Female

DRUGS (1)
  1. DEPO-PROVERA [Suspect]
     Active Substance: MEDROXYPROGESTERONE ACETATE
     Dosage: 150 MG/ML

REACTIONS (2)
  - Syringe issue [Unknown]
  - Incorrect dose administered [Unknown]
